FAERS Safety Report 8366841-3 (Version None)
Quarter: 2012Q2

REPORT INFORMATION
  Report Type: 
  Country: None (occurrence: None)
  Receive Date: 20120517
  Receipt Date: 20120509
  Transmission Date: 20120825
  Serious: Yes (Death)
  Sender: FDA-Public Use
  Company Number: CN-ROCHE-693672

PATIENT
  Sex: Female
  Weight: 44 kg

DRUGS (13)
  1. SPIRONOLACTONE [Concomitant]
     Dates: start: 20100312, end: 20100319
  2. TELMISARTAN [Concomitant]
  3. METHOXYPHENAMINE [Concomitant]
  4. ACTEMRA [Suspect]
     Indication: RHEUMATOID ARTHRITIS
     Dosage: LAST DOSE PRIOR TO SAE 24/MAR/2010
     Route: 042
     Dates: start: 20100228
  5. MOXIFLOXACIN [Concomitant]
  6. AMLODIPINE MALEATE [Concomitant]
  7. LEVOFLOXACIN [Concomitant]
  8. KETOTIFEN FUMARATE [Concomitant]
  9. PREDNISONE [Concomitant]
  10. ACTEMRA [Suspect]
     Dosage: THE PATIENT WAS PREVIOUSLY ENROLLED IN WA17824 AND WAS RECIEVING TOCILIZUMAB.
     Route: 042
  11. FUROSEMIDE [Concomitant]
     Dates: start: 20100312, end: 20100314
  12. METOPROLOL NOS [Suspect]
     Indication: HYPERTENSION
     Route: 065
  13. AZITHROMYCIN [Concomitant]

REACTIONS (1)
  - SUDDEN DEATH [None]
